FAERS Safety Report 8461697-2 (Version None)
Quarter: 2012Q2

REPORT INFORMATION
  Report Type: 
  Country: None (occurrence: None)
  Receive Date: 20120625
  Receipt Date: 20120615
  Transmission Date: 20120825
  Serious: Yes (Hospitalization)
  Sender: FDA-Public Use
  Company Number: US-US-EMD SERONO, INC.-7141279

PATIENT
  Sex: Female

DRUGS (2)
  1. TYLENOL PM [Concomitant]
     Indication: PRODUCT USED FOR UNKNOWN INDICATION
  2. REBIF [Suspect]
     Indication: PRODUCT USED FOR UNKNOWN INDICATION
     Route: 058
     Dates: start: 20111010

REACTIONS (6)
  - INJECTION SITE HAEMORRHAGE [None]
  - GALLBLADDER OPERATION [None]
  - HAEMOGLOBIN DECREASED [None]
  - INJECTION SITE DISCOLOURATION [None]
  - HEPATIC ENZYME INCREASED [None]
  - ASTHENIA [None]
